FAERS Safety Report 6990475-6 (Version None)
Quarter: 2010Q3

REPORT INFORMATION
  Report Type: 
  Country: None (occurrence: None)
  Receive Date: 20100916
  Receipt Date: 20100712
  Transmission Date: 20110219
  Serious: No
  Sender: FDA-Public Use
  Company Number: US-PFIZER INC-2010087031

PATIENT
  Sex: Female
  Weight: 56 kg

DRUGS (2)
  1. LYRICA [Suspect]
     Indication: FIBROMYALGIA
     Dosage: 75 MG, UNK
     Route: 048
  2. LYRICA [Suspect]
     Dosage: 100 MG, UNK

REACTIONS (1)
  - GAIT DISTURBANCE [None]
